FAERS Safety Report 4440639-0 (Version None)
Quarter: 2004Q3

REPORT INFORMATION
  Report Type: 
  Country: None (occurrence: None)
  Receive Date: 20040901
  Receipt Date: 20040901
  Transmission Date: 20050211
  Serious: Yes (Hospitalization)
  Sender: FDA-Public Use
  Company Number: None

PATIENT
  Sex: Male
  Weight: 80.2867 kg

DRUGS (7)
  1. NORVASC [Suspect]
     Dosage: 5 MG PO QD [PRIOR TO ADMISSION]
  2. ALTACE [Concomitant]
  3. ASPIRIN [Concomitant]
  4. PREVACID [Concomitant]
  5. HUMULIN [Concomitant]
  6. ACTOS [Concomitant]
  7. ZOCOR [Concomitant]

REACTIONS (3)
  - DIZZINESS [None]
  - NAUSEA [None]
  - VOMITING [None]
